FAERS Safety Report 4416683-6 (Version None)
Quarter: 2004Q2

REPORT INFORMATION
  Report Type: 
  Country: None (occurrence: None)
  Receive Date: 20040630
  Receipt Date: 20031028
  Transmission Date: 20050107
  Serious: Yes (Hospitalization, Disabling)
  Sender: FDA-Public Use
  Company Number: WAES 0310USA03041

PATIENT
  Age: 43 Year
  Sex: Female

DRUGS (2)
  1. HYZAAR [Suspect]
     Indication: HYPERTENSION
     Dosage: 100-25 MG/DAILY/PO
     Route: 048
     Dates: start: 20010101, end: 20030911
  2. ZOLOFT (THERAPY UNSPECIFIED) [Concomitant]

REACTIONS (3)
  - ANGIONEUROTIC OEDEMA [None]
  - HEADACHE [None]
  - URTICARIA [None]
